FAERS Safety Report 7918821-7 (Version None)
Quarter: 2011Q4

REPORT INFORMATION
  Report Type: 
  Country: None (occurrence: None)
  Receive Date: 20111116
  Receipt Date: 20111115
  Transmission Date: 20120403
  Serious: Yes (Other)
  Sender: FDA-Public Use
  Company Number: US-AMGEN-USASP2011054481

PATIENT
  Age: 87 Year
  Sex: Male
  Weight: 83.9 kg

DRUGS (2)
  1. NPLATE [Suspect]
     Indication: MYELODYSPLASTIC SYNDROME
     Dosage: 90 MUG, QWK
     Route: 058
     Dates: start: 20110715, end: 20110818
  2. NPLATE [Suspect]
     Indication: IDIOPATHIC THROMBOCYTOPENIC PURPURA

REACTIONS (2)
  - LABORATORY TEST ABNORMAL [None]
  - THERAPEUTIC RESPONSE DECREASED [None]
